FAERS Safety Report 13273735 (Version 1)
Quarter: 2017Q1

REPORT INFORMATION
  Report Type: Spontaneous
  Country: US (occurrence: US)
  Receive Date: 20170227
  Receipt Date: 20170227
  Transmission Date: 20170428
  Serious: Yes (Hospitalization, Other)
  Sender: FDA-Public Use
  Company Number: US-UNITED THERAPEUTICS-UNT-2017-001696

PATIENT
  Age: 38 Year
  Sex: Female
  Weight: 53.61 kg

DRUGS (4)
  1. TRACLEER [Concomitant]
     Active Substance: BOSENTAN
     Indication: PRODUCT USED FOR UNKNOWN INDICATION
  2. SILDENAFIL CITRATE. [Concomitant]
     Active Substance: SILDENAFIL CITRATE
     Indication: PRODUCT USED FOR UNKNOWN INDICATION
  3. COUMADIN [Concomitant]
     Active Substance: WARFARIN SODIUM
     Indication: PRODUCT USED FOR UNKNOWN INDICATION
  4. REMODULIN [Suspect]
     Active Substance: TREPROSTINIL
     Indication: PULMONARY ARTERIAL HYPERTENSION
     Dosage: 0.12 ?G/KG, CONTINUING
     Route: 041
     Dates: start: 20151230

REACTIONS (4)
  - Cardiomegaly [Unknown]
  - Central venous catheterisation [Recovered/Resolved]
  - Superior vena cava syndrome [Unknown]
  - Device related sepsis [Recovered/Resolved]

NARRATIVE: CASE EVENT DATE: 201701
